FAERS Safety Report 4882140-6 (Version None)
Quarter: 2006Q1

REPORT INFORMATION
  Report Type: 
  Country: None (occurrence: None)
  Receive Date: 20060117
  Receipt Date: 20051005
  Transmission Date: 20060701
  Serious: Yes (Hospitalization, Disabling, Other)
  Sender: FDA-Public Use
  Company Number: US-MERCK-0510USA04226

PATIENT
  Age: 58 Year
  Sex: Female
  Weight: 118 kg

DRUGS (1)
  1. VIOXX [Suspect]
     Indication: ARTHRITIS
     Route: 048
     Dates: end: 20040101

REACTIONS (3)
  - CARDIOVASCULAR DISORDER [None]
  - ISCHAEMIC STROKE [None]
  - MYOCARDIAL INFARCTION [None]
